FAERS Safety Report 5795546-8 (Version None)
Quarter: 2008Q2

REPORT INFORMATION
  Report Type: 
  Country: None (occurrence: None)
  Receive Date: 20080630
  Receipt Date: 20080618
  Transmission Date: 20081010
  Serious: Yes (Other)
  Sender: FDA-Public Use
  Company Number: PHHY2008JP11815

PATIENT
  Age: 68 Year
  Sex: Female

DRUGS (9)
  1. TEGRETOL [Suspect]
     Indication: TRIGEMINAL NEURALGIA
     Dosage: UNK
  2. ZONISAMIDE [Concomitant]
     Indication: TRIGEMINAL NEURALGIA
     Dosage: UNK
  3. MINOCYCLINE HYDROCHLORIDE [Concomitant]
     Indication: PHARYNGITIS
     Dosage: UNK
     Dates: start: 20030806
  4. MINOCYCLINE HYDROCHLORIDE [Concomitant]
     Indication: PYREXIA
  5. CYCLOSPORINE [Concomitant]
     Dosage: 3-5 MG/KG
  6. AZATHIOPRINE [Concomitant]
     Dosage: 100 MG/DAY
  7. CYCLOPHOSPHAMIDE [Concomitant]
     Dosage: 500 MG/DAY
  8. PLASMAPHERESIS [Concomitant]
     Dosage: DOUBLE FILTRATION
  9. MYCOPHENOLATE MOFETIL [Concomitant]
     Dosage: 3G/DAY

REACTIONS (13)
  - DRUG ERUPTION [None]
  - DRUG RASH WITH EOSINOPHILIA AND SYSTEMIC SYMPTOMS [None]
  - EOSINOPHILIA [None]
  - ERYTHEMA [None]
  - GAMMA-GLUTAMYLTRANSFERASE INCREASED [None]
  - HEPATIC ENZYME INCREASED [None]
  - LEUKOCYTOSIS [None]
  - LYMPHADENITIS [None]
  - LYMPHOCYTE MORPHOLOGY ABNORMAL [None]
  - PEMPHIGOID [None]
  - PERIVASCULAR DERMATITIS [None]
  - PYREXIA [None]
  - SCLERODERMA [None]
